FAERS Safety Report 19488337 (Version 1)
Quarter: 2021Q3

REPORT INFORMATION
  Report Type: Spontaneous
  Country: US (occurrence: US)
  Receive Date: 20210702
  Receipt Date: 20210702
  Transmission Date: 20211014
  Serious: No
  Sender: FDA-Public Use
  Company Number: US-BIODELIVERY SCIENCES INTERNATIONAL-2021BDSI0068

PATIENT
  Age: 45 Year
  Sex: Male
  Weight: 95.34 kg

DRUGS (4)
  1. BUPRENORPHINE. [Suspect]
     Active Substance: BUPRENORPHINE
     Indication: PAIN
     Route: 002
     Dates: start: 2019
  2. METFORMIN [Concomitant]
     Active Substance: METFORMIN HYDROCHLORIDE
     Indication: DIABETES MELLITUS
     Route: 065
  3. LIRAGLUTIDE [Concomitant]
     Active Substance: LIRAGLUTIDE
     Indication: DIABETES MELLITUS
     Route: 065
  4. BENAZEPRIL HYDROCHLORIDE/AMLODIPINE BESILATE [Concomitant]
     Indication: HYPERTENSION
     Dosage: 5/20 MG
     Route: 048

REACTIONS (1)
  - Drug screen negative [Not Recovered/Not Resolved]

NARRATIVE: CASE EVENT DATE: 2019
